FAERS Safety Report 6468563-2 (Version None)
Quarter: 2009Q4

REPORT INFORMATION
  Report Type: 
  Country: None (occurrence: None)
  Receive Date: 20091203
  Receipt Date: 20091124
  Transmission Date: 20100525
  Serious: Yes (Hospitalization)
  Sender: FDA-Public Use
  Company Number: JP-ASTRAZENECA-2009SE27560

PATIENT
  Age: 71 Year
  Sex: Female
  Weight: 45 kg

DRUGS (5)
  1. IRESSA [Suspect]
     Indication: LUNG ADENOCARCINOMA
     Route: 048
     Dates: start: 20090901, end: 20090910
  2. IRESSA [Suspect]
     Route: 048
     Dates: start: 20091002, end: 20091005
  3. EXCEGRAN [Concomitant]
     Indication: EPILEPSY
     Route: 048
     Dates: start: 20090701
  4. PREDONINE [Concomitant]
     Indication: BRAIN CANCER METASTATIC
     Route: 048
     Dates: start: 20090701
  5. GASPORT-D [Concomitant]
     Indication: GASTRIC ULCER
     Route: 048
     Dates: start: 20090701

REACTIONS (2)
  - DRUG ERUPTION [None]
  - INTERSTITIAL LUNG DISEASE [None]
